FAERS Safety Report 9613104 (Version 2)
Quarter: 2013Q4

REPORT INFORMATION
  Report Type: Spontaneous
  Country: AU (occurrence: AU)
  Receive Date: 20131010
  Receipt Date: 20131010
  Transmission Date: 20140711
  Serious: Yes (Hospitalization)
  Sender: FDA-Public Use
  Company Number: PHHY2013AU104776

PATIENT
  Age: 32 Year
  Sex: Female

DRUGS (4)
  1. VALPROIC ACID [Suspect]
     Indication: CONVULSION
     Dosage: 1500 MG,  DAILY
  2. DOXEPIN [Interacting]
     Indication: DEPRESSION
     Dosage: 50 MG, UNK
  3. DOXEPIN [Interacting]
     Dosage: 250 MG, AT NIGHT
  4. LAMOTRIGINE [Concomitant]
     Indication: CONVULSION
     Dosage: 200 MG, DAILY

REACTIONS (11)
  - Lip injury [Recovered/Resolved]
  - Complex partial seizures [Recovered/Resolved]
  - Tardive dyskinesia [Recovered/Resolved]
  - Posture abnormal [Recovered/Resolved]
  - Dissociation [Recovered/Resolved]
  - Dyskinesia [Recovered/Resolved]
  - Urinary incontinence [Recovered/Resolved]
  - Loss of consciousness [Recovered/Resolved]
  - Grand mal convulsion [Unknown]
  - Altered state of consciousness [Recovered/Resolved]
  - Feeling abnormal [Unknown]
